FAERS Safety Report 25670454 (Version 2)
Quarter: 2025Q3

REPORT INFORMATION
  Report Type: Spontaneous
  Country: US (occurrence: US)
  Receive Date: 20250812
  Receipt Date: 20250813
  Transmission Date: 20251021
  Serious: Yes (Hospitalization, Other)
  Sender: ANI
  Company Number: US-ANIPHARMA-2025-US-036658

PATIENT
  Age: 82 Year
  Sex: Male
  Weight: 77.11 kg

DRUGS (15)
  1. CORTICOTROPIN [Suspect]
     Active Substance: CORTICOTROPIN
     Indication: Gout
     Route: 058
     Dates: start: 20240712
  2. OZEMPIC [Concomitant]
     Active Substance: SEMAGLUTIDE
  3. VITAMINS [Concomitant]
     Active Substance: VITAMINS
  4. HYDROCODONE [Concomitant]
     Active Substance: HYDROCODONE
  5. VITAMIN D [Concomitant]
     Active Substance: VITAMIN D NOS
  6. HUMALOG [Concomitant]
     Active Substance: INSULIN LISPRO
  7. LANTUS SOLOSTAR [Concomitant]
     Active Substance: INSULIN GLARGINE
  8. KRYSTEXXA [Concomitant]
     Active Substance: PEGLOTICASE
  9. BUMEX [Concomitant]
     Active Substance: BUMETANIDE
  10. TERAZOSIN [Concomitant]
     Active Substance: TERAZOSIN HYDROCHLORIDE
  11. GABAPENTIN [Concomitant]
     Active Substance: GABAPENTIN
  12. ELIQUIS [Concomitant]
     Active Substance: APIXABAN
  13. SPIRONOLACTONE [Concomitant]
     Active Substance: SPIRONOLACTONE
  14. LEVOTHYROXINE [Concomitant]
     Active Substance: LEVOTHYROXINE
  15. REPATHA [Concomitant]
     Active Substance: EVOLOCUMAB

REACTIONS (4)
  - Pneumonia [Recovering/Resolving]
  - Contraindicated product administered [Recovered/Resolved]
  - Pulmonary fibrosis [Unknown]
  - Lung disorder [Unknown]

NARRATIVE: CASE EVENT DATE: 20250728
